FAERS Safety Report 16766812 (Version 2)
Quarter: 2021Q1

REPORT INFORMATION
  Report Type: Spontaneous
  Country: US (occurrence: US)
  Receive Date: 20190903
  Receipt Date: 20210106
  Transmission Date: 20210419
  Serious: No
  Sender: FDA-Public Use
  Company Number: US-BAYER-2019-160507

PATIENT
  Age: 4 Decade
  Sex: Female

DRUGS (1)
  1. MIRENA [Suspect]
     Active Substance: LEVONORGESTREL
     Indication: CONTRACEPTION
     Dosage: 20 MCG/24HR, CONT
     Route: 015
     Dates: start: 201602, end: 201602

REACTIONS (3)
  - Medical device discomfort [None]
  - Complication of device insertion [None]
  - Device defective [None]

NARRATIVE: CASE EVENT DATE: 201602
